FAERS Safety Report 11568243 (Version 1)
Quarter: 2015Q3

REPORT INFORMATION
  Report Type: Spontaneous
  Country: US (occurrence: US)
  Receive Date: 20150916
  Receipt Date: 20150916
  Transmission Date: 20151125
  Serious: Yes (Hospitalization)
  Sender: FDA-Public Use
  Company Number: US-ELI_LILLY_AND_COMPANY-US200908002680

PATIENT
  Age: 68 Year
  Sex: Female

DRUGS (1)
  1. FORTEO [Suspect]
     Active Substance: TERIPARATIDE
     Indication: SENILE OSTEOPOROSIS
     Dosage: UNK, UNK
     Dates: start: 200905

REACTIONS (5)
  - Post procedural haemorrhage [Recovering/Resolving]
  - Basal cell carcinoma [Unknown]
  - Chest pain [Unknown]
  - Drug dose omission [Unknown]
  - Tachycardia [Unknown]

NARRATIVE: CASE EVENT DATE: 2009
